FAERS Safety Report 15923478 (Version 2)
Quarter: 2019Q1

REPORT INFORMATION
  Report Type: Spontaneous
  Country: US (occurrence: US)
  Receive Date: 20190205
  Receipt Date: 20190219
  Transmission Date: 20190417
  Serious: No
  Sender: FDA-Public Use
  Company Number: US-ALLERGAN-1823099US

PATIENT

DRUGS (2)
  1. JUVEDERM [Concomitant]
     Active Substance: HYALURONIC ACID
     Indication: PRODUCT USED FOR UNKNOWN INDICATION
     Dosage: UNK, SINGLE
     Route: 030
  2. BOTOX COSMETIC [Suspect]
     Active Substance: ONABOTULINUMTOXINA
     Indication: SKIN WRINKLING
     Dosage: 12 UNITS, SINGLE
     Route: 030
     Dates: start: 20180221, end: 20180221

REACTIONS (5)
  - Eye irritation [Not Recovered/Not Resolved]
  - Dry eye [Unknown]
  - Conjunctivitis allergic [Unknown]
  - Vision blurred [Not Recovered/Not Resolved]
  - Swelling of eyelid [Unknown]

NARRATIVE: CASE EVENT DATE: 201802
